FAERS Safety Report 9140910 (Version 3)
Quarter: 2013Q2

REPORT INFORMATION
  Report Type: Spontaneous
  Country: US (occurrence: US)
  Receive Date: 20130305
  Receipt Date: 20130502
  Transmission Date: 20140414
  Serious: Yes (Life-Threatening, Hospitalization, Other)
  Sender: FDA-Public Use
  Company Number: US-009507513-1302USA012121

PATIENT
  Age: 73 Year
  Sex: Female
  Weight: 73.47 kg

DRUGS (5)
  1. DULERA [Suspect]
     Indication: ASTHMA
     Dosage: 1 P, BID
     Route: 048
     Dates: start: 20130107, end: 20130224
  2. DULERA [Suspect]
     Dosage: 200MCG/5MCG
     Route: 048
     Dates: start: 20121217, end: 2013
  3. PREDNISONE [Concomitant]
     Dosage: 1 DAILY DOSE
     Route: 048
  4. LISINOPRIL [Concomitant]
     Dosage: 12.5 MG, DAILY DOSE
     Route: 048
  5. PRAVASTATIN SODIUM [Concomitant]
     Dosage: 20 MG, DAILY DOSE
     Route: 048

REACTIONS (3)
  - Speech disorder [Recovered/Resolved]
  - Swollen tongue [Recovered/Resolved]
  - Insomnia [Recovered/Resolved]
